FAERS Safety Report 7511213-4 (Version None)
Quarter: 2011Q2

REPORT INFORMATION
  Report Type: 
  Country: None (occurrence: None)
  Receive Date: 20110531
  Receipt Date: 20090427
  Transmission Date: 20111010
  Serious: Yes (Death, Other)
  Sender: FDA-Public Use
  Company Number: US-BAYER-200918867NA

PATIENT
  Age: 71 Year
  Sex: Female
  Weight: 102 kg

DRUGS (10)
  1. TRASYLOL [Suspect]
     Indication: CORONARY ARTERY BYPASS
     Dosage: LOADING DOSE OF 200ML FOLLOWED BY 50ML/HR
     Route: 042
     Dates: start: 20060412, end: 20060412
  2. HEPARIN [Concomitant]
     Dosage: 41,000 UNITS
     Route: 042
     Dates: start: 20060412, end: 20060421
  3. TRASYLOL [Suspect]
     Indication: MITRAL VALVE REPLACEMENT
  4. HUMULIN N [Concomitant]
     Dosage: 30 UNITS BEFORE BREAKFAST AND BEFORE AND DINNER
  5. LASIX [Concomitant]
     Dosage: 20 MG, QD
  6. ZIAC [Concomitant]
     Dosage: 5/6.25MG EVERYDAY
  7. PROTAMINE SULFATE [Concomitant]
     Dosage: 300MG
  8. DOPAMINE HCL [Concomitant]
     Dosage: UNK
     Route: 042
     Dates: start: 20060412, end: 20060412
  9. ALTACE [Concomitant]
     Dosage: 10 MG, QD
  10. FENTANYL [Concomitant]
     Dosage: 5ML X 2
     Dates: start: 20060412, end: 20060412

REACTIONS (14)
  - RENAL FAILURE [None]
  - RENAL FAILURE CHRONIC [None]
  - STRESS [None]
  - ANXIETY [None]
  - UNEVALUABLE EVENT [None]
  - PAIN [None]
  - FEAR [None]
  - RENAL INJURY [None]
  - RENAL IMPAIRMENT [None]
  - EMOTIONAL DISTRESS [None]
  - INJURY [None]
  - DEATH [None]
  - ANHEDONIA [None]
  - MULTI-ORGAN FAILURE [None]
